FAERS Safety Report 9303857 (Version 1)
Quarter: 2013Q2

REPORT INFORMATION
  Report Type: Spontaneous
  Country: CN (occurrence: CN)
  Receive Date: 20130522
  Receipt Date: 20130522
  Transmission Date: 20140414
  Serious: Yes (Other)
  Sender: FDA-Public Use
  Company Number: CN-ASTRAZENECA-2013SE35623

PATIENT
  Sex: Male
  Weight: 9.5 kg

DRUGS (6)
  1. BUDESONIDE [Suspect]
     Indication: BRONCHOPNEUMONIA
     Route: 055
     Dates: start: 20120221, end: 20120302
  2. TERBUTALINE SULFATE [Suspect]
     Indication: BRONCHOPNEUMONIA
     Route: 065
     Dates: start: 20120221, end: 20120302
  3. AZITHROMYCIN [Suspect]
     Indication: MYCOPLASMA INFECTION
     Route: 048
     Dates: start: 20120223, end: 20120227
  4. AMBROXOL HYDROCHLORIDE [Suspect]
     Indication: BRONCHOPNEUMONIA
     Route: 041
     Dates: start: 20120221, end: 20120302
  5. IPRATROPIUM BROMIDE [Suspect]
     Indication: BRONCHOPNEUMONIA
     Route: 065
     Dates: start: 20120221, end: 20120302
  6. CEFUROXIME SODIUM [Suspect]
     Indication: BRONCHOPNEUMONIA
     Route: 041
     Dates: start: 20120221, end: 20120229

REACTIONS (2)
  - Leukopenia [Recovering/Resolving]
  - Neutropenia [Recovering/Resolving]
